FAERS Safety Report 19714293 (Version 1)
Quarter: 2021Q3

REPORT INFORMATION
  Report Type: Report from Study
  Country: None (occurrence: TR)
  Receive Date: 20210818
  Receipt Date: 20210818
  Transmission Date: 20211014
  Serious: Yes (Death)
  Sender: FDA-Public Use
  Company Number: TR-ABBVIE-21K-161-4043420-00

PATIENT
  Sex: Male
  Weight: 88 kg

DRUGS (4)
  1. DUODOPA [Suspect]
     Active Substance: CARBIDOPA\LEVODOPA
     Indication: PARKINSON^S DISEASE
     Dosage: MORNING DOSE (ML): 10.00 CONTINIOUS DOSE (ML): 5.00 EXTRA DOSE (ML): 1.00
     Route: 050
     Dates: start: 20180418
  2. DUODOPA [Suspect]
     Active Substance: CARBIDOPA\LEVODOPA
  3. MADOPAR HBS [Concomitant]
     Active Substance: BENSERAZIDE HYDROCHLORIDE\LEVODOPA
     Indication: PARKINSON^S DISEASE
     Route: 048
     Dates: start: 2009
  4. GUTRON [Concomitant]
     Active Substance: MIDODRINE HYDROCHLORIDE
     Indication: HYPOTENSION
     Route: 048
     Dates: start: 20210813

REACTIONS (1)
  - Cardiac failure [Fatal]
